FAERS Safety Report 16466463 (Version 1)
Quarter: 2019Q2

REPORT INFORMATION
  Report Type: Report from Study
  Country: DE (occurrence: DE)
  Receive Date: 20190622
  Receipt Date: 20190622
  Transmission Date: 20190711
  Serious: Yes (Disabling)
  Sender: FDA-Public Use
  Company Number: DE-UCBSA-2017041617

PATIENT
  Age: 41 Year
  Sex: Female

DRUGS (6)
  1. ROTIGOTINE [Suspect]
     Active Substance: ROTIGOTINE
     Dosage: 8 MG, ONCE DAILY (QD)
     Route: 062
  2. PRAMIPEXOL [Concomitant]
     Active Substance: PRAMIPEXOLE
     Indication: PRODUCT USED FOR UNKNOWN INDICATION
     Dosage: UNK
  3. RESTEX [Suspect]
     Active Substance: BENSERAZIDE\LEVODOPA
     Indication: PRODUCT USED FOR UNKNOWN INDICATION
     Dosage: 100 MG/25 MG, ONCE DAILY (QD)
  4. RESTEX [Suspect]
     Active Substance: BENSERAZIDE\LEVODOPA
     Dosage: 100 MG/25 MG, 2X/DAY (BID)
  5. CORTISONE [Concomitant]
     Active Substance: CORTISONE\HYDROCORTISONE
     Indication: PRODUCT USED FOR UNKNOWN INDICATION
     Dosage: UNK, AS NEEDED (PRN)
  6. ROTIGOTINE [Suspect]
     Active Substance: ROTIGOTINE
     Indication: RESTLESS LEGS SYNDROME
     Dosage: 6 MG, ONCE DAILY (QD)
     Route: 062
     Dates: start: 20150608

REACTIONS (10)
  - Food poisoning [Recovered/Resolved]
  - Bronchitis bacterial [Recovering/Resolving]
  - Muscle twitching [Unknown]
  - Pneumonia [Recovering/Resolving]
  - Overdose [Unknown]
  - Asthma [Not Recovered/Not Resolved]
  - Nausea [Unknown]
  - Off label use [Unknown]
  - Sleep apnoea syndrome [Not Recovered/Not Resolved]
  - Monoparesis [Not Recovered/Not Resolved]

NARRATIVE: CASE EVENT DATE: 20161101
